FAERS Safety Report 8896161 (Version 3)
Quarter: 2012Q4

REPORT INFORMATION
  Report Type: Report from Study
  Country: NO (occurrence: NO)
  Receive Date: 20121108
  Receipt Date: 20121205
  Transmission Date: 20130627
  Serious: Yes (Hospitalization)
  Sender: FDA-Public Use
  Company Number: NO-ROCHE-1149037

PATIENT
  Age: 53 Year
  Sex: Female
  Weight: 80 kg

DRUGS (3)
  1. TRASTUZUMAB [Suspect]
     Indication: BREAST CANCER
     Dosage: last dose proir to SAE on 18/Oct/2012
     Route: 058
     Dates: start: 20120816
  2. DOCETAXEL [Suspect]
     Indication: BREAST CANCER
     Dosage: last dose prior to sae 18/oct/2012
     Route: 065
     Dates: start: 20120817, end: 20121018
  3. EPIRUBICIN [Concomitant]
     Route: 065
     Dates: start: 20120524, end: 20120726

REACTIONS (1)
  - Myocarditis [Recovered/Resolved]
